FAERS Safety Report 10093242 (Version 1)
Quarter: 2014Q2

REPORT INFORMATION
  Report Type: Spontaneous
  Country: US (occurrence: US)
  Receive Date: 20140421
  Receipt Date: 20140421
  Transmission Date: 20141212
  Serious: No
  Sender: FDA-Public Use
  Company Number: US-SANOFI-AVENTIS-2013SA055155

PATIENT
  Age: 62 Year
  Sex: Male

DRUGS (3)
  1. ALLEGRA [Suspect]
     Indication: HYPERSENSITIVITY
     Dosage: START DATE: SEVERAL YEARS AGO
     Route: 048
  2. LISINOPRIL [Concomitant]
     Indication: BLOOD PRESSURE
  3. HYDROCHLOROTHIAZIDE [Concomitant]
     Indication: BLOOD PRESSURE

REACTIONS (2)
  - Back pain [Not Recovered/Not Resolved]
  - Therapeutic response decreased [Unknown]
